FAERS Safety Report 22075365 (Version 1)
Quarter: 2023Q1

REPORT INFORMATION
  Report Type: Spontaneous
  Country: US (occurrence: US)
  Receive Date: 20230308
  Receipt Date: 20230308
  Transmission Date: 20230418
  Serious: Yes (Disabling)
  Sender: FDA-Public Use
  Company Number: US-TEVA-2023-US-2862716

PATIENT
  Age: 40 Year
  Sex: Female

DRUGS (2)
  1. ARMODAFINIL [Suspect]
     Active Substance: ARMODAFINIL
     Indication: Product used for unknown indication
     Route: 065
  2. NUVIGIL [Suspect]
     Active Substance: ARMODAFINIL
     Indication: Product used for unknown indication
     Route: 065

REACTIONS (4)
  - Disability [Unknown]
  - Drug withdrawal syndrome [Unknown]
  - Adverse drug reaction [Unknown]
  - Product supply issue [Unknown]
